FAERS Safety Report 5068775-9 (Version None)
Quarter: 2006Q3

REPORT INFORMATION
  Report Type: 
  Country: None (occurrence: None)
  Receive Date: 20060802
  Receipt Date: 20060327
  Transmission Date: 20061208
  Serious: No
  Sender: FDA-Public Use
  Company Number: US-BRISTOL-MYERS SQUIBB COMPANY-13327788

PATIENT
  Age: 53 Year
  Sex: Male
  Weight: 66 kg

DRUGS (3)
  1. COUMADIN [Suspect]
     Indication: MITRAL VALVE REPLACEMENT
     Route: 048
  2. AMBIEN [Concomitant]
     Dates: start: 20051101
  3. NIACIN [Concomitant]
     Dates: end: 20060101

REACTIONS (7)
  - CHEST DISCOMFORT [None]
  - FATIGUE [None]
  - INSOMNIA [None]
  - MUSCULOSKELETAL CHEST PAIN [None]
  - PALPITATIONS [None]
  - PERIPHERAL COLDNESS [None]
  - WEIGHT DECREASED [None]
